FAERS Safety Report 6229929-9 (Version None)
Quarter: 2009Q2

REPORT INFORMATION
  Report Type: 
  Country: None (occurrence: None)
  Receive Date: 20090615
  Receipt Date: 20090605
  Transmission Date: 20091009
  Serious: Yes (Other)
  Sender: FDA-Public Use
  Company Number: US-ELI_LILLY_AND_COMPANY-US200906001648

PATIENT
  Sex: Female

DRUGS (2)
  1. HUMALOG [Suspect]
     Dosage: UNK, 3/D
     Dates: start: 19990101
  2. CHEMOTHERAPEUTICS NOS [Concomitant]
     Indication: BREAST CANCER

REACTIONS (3)
  - BREAST CANCER [None]
  - CARDIAC DISORDER [None]
  - INCORRECT DOSE ADMINISTERED [None]
